FAERS Safety Report 23933648 (Version 4)
Quarter: 2025Q1

REPORT INFORMATION
  Report Type: Spontaneous
  Country: CA (occurrence: CA)
  Receive Date: 20240603
  Receipt Date: 20250213
  Transmission Date: 20250408
  Serious: Yes (Other)
  Sender: PFIZER
  Company Number: CA-PFIZER INC-202400012655

PATIENT
  Age: 65 Year
  Sex: Female

DRUGS (3)
  1. ABRILADA [Suspect]
     Active Substance: ADALIMUMAB-AFZB
     Indication: Psoriasis
     Route: 058
     Dates: start: 20231129
  2. ABRILADA [Suspect]
     Active Substance: ADALIMUMAB-AFZB
     Indication: Psoriatic arthropathy
  3. METHOTREXATE [Concomitant]
     Active Substance: METHOTREXATE
     Dates: start: 202501

REACTIONS (3)
  - Fibroma [Not Recovered/Not Resolved]
  - Dyspareunia [Not Recovered/Not Resolved]
  - Condition aggravated [Not Recovered/Not Resolved]
